FAERS Safety Report 9491838 (Version 2)
Quarter: 2013Q3

REPORT INFORMATION
  Report Type: Not Available
  Country: US (occurrence: US)
  Receive Date: 20130919
  Receipt Date: 20130919
  Transmission Date: 20140515
  Serious: Yes (Hospitalization)
  Sender: FDA-Public Use
  Company Number: US-LUNDBECK-DKLU1083539

PATIENT
  Age: 1 Year
  Sex: Female

DRUGS (5)
  1. SABRIL (FOR ORAL SOLUTION) [Suspect]
     Indication: INFANTILE SPASMS
     Dates: start: 20120125
  2. SABRIL (FOR ORAL SOLUTION) [Suspect]
     Dates: start: 20120125
  3. SABRIL (FOR ORAL SOLUTION) [Suspect]
     Route: 048
     Dates: start: 20120130
  4. SABRIL (FOR ORAL SOLUTION) [Suspect]
     Route: 048
     Dates: start: 201207
  5. SABRIL (FOR ORAL SOLUTION) [Suspect]
     Route: 048
     Dates: start: 201207

REACTIONS (4)
  - Convulsion [Unknown]
  - Urinary tract infection [Recovered/Resolved]
  - Incorrect dose administered [Recovered/Resolved]
  - Drug dose omission [Recovered/Resolved]
